FAERS Safety Report 4830633-X (Version None)
Quarter: 2005Q4

REPORT INFORMATION
  Report Type: 
  Country: None (occurrence: None)
  Receive Date: 20051114
  Receipt Date: 20051107
  Transmission Date: 20060501
  Serious: Yes (Other)
  Sender: FDA-Public Use
  Company Number: 200509540

PATIENT
  Age: 63 Year
  Sex: Male
  Weight: 100 kg

DRUGS (7)
  1. STREPTASE [Suspect]
     Indication: ACUTE MYOCARDIAL INFARCTION
     Dosage: 5 MIU DAILY
     Dates: start: 20050823, end: 20050823
  2. ASPIRIN [Suspect]
     Indication: ACUTE MYOCARDIAL INFARCTION
     Dosage: 325 MG DAILY PO
     Route: 048
     Dates: start: 20050823, end: 20050823
  3. ENOXAPARIN SODIUM [Suspect]
     Indication: ACUTE MYOCARDIAL INFARCTION
     Dosage: IV
     Route: 042
     Dates: start: 20050823, end: 20050823
  4. HEPARIN [Suspect]
     Dosage: 5000 U DAILY
  5. METOPROLOL [Concomitant]
  6. PRAVASTATIN [Concomitant]
  7. NITROGLYCERIN [Concomitant]

REACTIONS (7)
  - DISEASE RECURRENCE [None]
  - EROSIVE OESOPHAGITIS [None]
  - GASTRIC HAEMORRHAGE [None]
  - GASTRIC ULCER [None]
  - GASTRITIS EROSIVE [None]
  - MYOCARDIAL INFARCTION [None]
  - THROMBOSIS [None]
